FAERS Safety Report 8326785-X (Version None)
Quarter: 2012Q2

REPORT INFORMATION
  Report Type: 
  Country: None (occurrence: None)
  Receive Date: 20120501
  Receipt Date: 20120427
  Transmission Date: 20120825
  Serious: Yes (Life-Threatening, Hospitalization)
  Sender: FDA-Public Use
  Company Number: PHHY2012JP035757

PATIENT
  Age: 24 Year
  Sex: Female

DRUGS (2)
  1. TOPIRAMATE [Concomitant]
     Dosage: 275 MG, UNK
     Route: 048
  2. AMPICILLIN SODIUM/SULBACTAM SODIUM [Suspect]
     Dosage: 4.5 G, UNK
     Route: 042
     Dates: start: 20120423, end: 20120427

REACTIONS (5)
  - LIVER FUNCTION TEST ABNORMAL [None]
  - WHITE BLOOD CELL COUNT DECREASED [None]
  - HAEMORRHAGIC DIATHESIS [None]
  - OCULAR HYPERAEMIA [None]
  - MENORRHAGIA [None]
